FAERS Safety Report 5596803-0 (Version None)
Quarter: 2008Q1

REPORT INFORMATION
  Report Type: 
  Country: None (occurrence: None)
  Receive Date: 20080118
  Receipt Date: 20080109
  Transmission Date: 20080703
  Serious: Yes (Death)
  Sender: FDA-Public Use
  Company Number: US-PFIZER INC-2008003560

PATIENT
  Age: 80 Year
  Sex: Male

DRUGS (2)
  1. PHENYTOIN [Suspect]
     Route: 048
  2. WARFARIN SODIUM [Suspect]
     Route: 048

REACTIONS (1)
  - MEDICATION ERROR [None]
